FAERS Safety Report 18221114 (Version 1)
Quarter: 2020Q3

REPORT INFORMATION
  Report Type: Spontaneous
  Country: US (occurrence: US)
  Receive Date: 20200901
  Receipt Date: 20200901
  Transmission Date: 20201103
  Serious: Yes (Death)
  Sender: FDA-Public Use
  Company Number: None

PATIENT
  Age: 70 Year
  Sex: Female
  Weight: 91.17 kg

DRUGS (1)
  1. REMDESIVIR. [Suspect]
     Active Substance: REMDESIVIR

REACTIONS (5)
  - Acute kidney injury [None]
  - Pyrexia [None]
  - Oliguria [None]
  - Troponin increased [None]
  - Dyspnoea [None]

NARRATIVE: CASE EVENT DATE: 20200829
